FAERS Safety Report 8484009-7 (Version None)
Quarter: 2012Q2

REPORT INFORMATION
  Report Type: 
  Country: None (occurrence: None)
  Receive Date: 20120402
  Receipt Date: 20110208
  Transmission Date: 20120825
  Serious: Yes (Hospitalization)
  Sender: FDA-Public Use
  Company Number: A-US2011-44828

PATIENT
  Age: 39 Year
  Sex: Female
  Weight: 98 kg

DRUGS (1)
  1. EPOPROSTENOL SODIUM [Suspect]
     Indication: PULMONARY ARTERIAL HYPERTENSION
     Dosage: 10 NG/KG, PER MIN, INTRAVENOUS
     Dates: start: 20110122

REACTIONS (3)
  - VOMITING [None]
  - NAUSEA [None]
  - HEADACHE [None]
